FAERS Safety Report 7914867-3 (Version None)
Quarter: 2011Q4

REPORT INFORMATION
  Report Type: 
  Country: None (occurrence: None)
  Receive Date: 20111115
  Receipt Date: 20111110
  Transmission Date: 20120403
  Serious: Yes (Other)
  Sender: FDA-Public Use
  Company Number: GB-TEVA-308606ISR

PATIENT
  Age: 27 Year
  Sex: Male

DRUGS (8)
  1. LACTULOSE [Concomitant]
  2. PROCHLORPERAZINE [Concomitant]
  3. ACETAMINOPHEN AND CODEINE PHOSPHATE [Concomitant]
  4. METRONIDAZOLE [Concomitant]
  5. AZITHROMYCIN [Suspect]
     Indication: URETHRITIS
     Route: 048
  6. MINIMS CHLORAMPHENICOL [Concomitant]
  7. FLOXACILLIN SODIUM [Concomitant]
  8. CEPHALEXIN [Suspect]
     Indication: URETHRITIS
     Route: 048

REACTIONS (2)
  - LOSS OF LIBIDO [None]
  - ERECTILE DYSFUNCTION [None]
